FAERS Safety Report 8090843-8 (Version None)
Quarter: 2012Q1

REPORT INFORMATION
  Report Type: 
  Country: None (occurrence: None)
  Receive Date: 20120131
  Receipt Date: 20120124
  Transmission Date: 20120608
  Serious: Yes (Other)
  Sender: FDA-Public Use
  Company Number: US-AMGEN-USASP2012002021

PATIENT
  Age: 56 Year
  Sex: Female

DRUGS (4)
  1. XGEVA [Suspect]
     Indication: METASTASES TO BONE
     Dosage: 120 MG, QMO
     Route: 058
     Dates: start: 20110328, end: 20111212
  2. GEMZAR [Concomitant]
     Dosage: UNK
     Dates: start: 20110314, end: 20110916
  3. CISPLATIN [Suspect]
     Dosage: UNK
     Dates: start: 20110314, end: 20110916
  4. NAVELBINE [Concomitant]
     Dosage: UNK
     Dates: start: 20111007, end: 20120113

REACTIONS (1)
  - HYPOMAGNESAEMIA [None]
